APPROVED DRUG PRODUCT: BRONKAID MIST
Active Ingredient: EPINEPHRINE
Strength: 0.25MG/INH
Dosage Form/Route: AEROSOL, METERED;INHALATION
Application: N016803 | Product #001
Applicant: STERLING HEALTH DIV STERLING WINTHROP INC
Approved: Approved Prior to Jan 1, 1982 | RLD: No | RS: No | Type: DISCN